FAERS Safety Report 8884515 (Version 1)
Quarter: 2012Q4

REPORT INFORMATION
  Report Type: 
  Country: US (occurrence: US)
  Receive Date: 20121102
  Receipt Date: 20121102
  Transmission Date: 20130627
  Serious: No
  Sender: FDA-Public Use
  Company Number: US-ASTRAZENECA-2012SE17686

PATIENT
  Sex: Male

DRUGS (3)
  1. CRESTOR [Suspect]
     Route: 048
  2. GENERIC LIPITOR [Concomitant]
  3. GENERIC ZOCOR [Concomitant]

REACTIONS (2)
  - Blood cholesterol increased [Unknown]
  - Intentional drug misuse [Unknown]
